FAERS Safety Report 11123199 (Version 1)
Quarter: 2015Q2

REPORT INFORMATION
  Report Type: Spontaneous
  Country: US (occurrence: US)
  Receive Date: 20150519
  Receipt Date: 20150519
  Transmission Date: 20150821
  Serious: Yes (Other)
  Sender: FDA-Public Use
  Company Number: US-BAUSCH-BL-2015-012975

PATIENT
  Age: 40 Year
  Sex: Female

DRUGS (1)
  1. TARGRETIN [Suspect]
     Active Substance: BEXAROTENE
     Indication: NEOPLASM MALIGNANT
     Dosage: 4 CAPSULES DAILY
     Route: 048
     Dates: start: 20150225

REACTIONS (1)
  - Metastasis [Unknown]
